FAERS Safety Report 7687407-4 (Version None)
Quarter: 2011Q3

REPORT INFORMATION
  Report Type: 
  Country: None (occurrence: None)
  Receive Date: 20110816
  Receipt Date: 20110711
  Transmission Date: 20111222
  Serious: Yes (Other)
  Sender: FDA-Public Use
  Company Number: FR-GENENTECH-273178

PATIENT
  Sex: Female
  Weight: 66 kg

DRUGS (25)
  1. DOXORUBICIN HCL [Suspect]
     Dosage: UNK
     Route: 042
     Dates: start: 20081126
  2. BLINDED RITUXIMAB [Suspect]
     Dosage: UNK
     Route: 042
     Dates: start: 20080630, end: 20081104
  3. VINCRISTINE [Suspect]
     Indication: DIFFUSE LARGE B-CELL LYMPHOMA
     Dosage: 2 MG, Q3W
     Route: 042
     Dates: start: 20080701
  4. CYCLOPHOSPHAMIDE [Suspect]
     Indication: DIFFUSE LARGE B-CELL LYMPHOMA
     Dosage: 1420 MG, Q3W
     Route: 042
     Dates: start: 20080701
  5. PREDNISONE [Suspect]
     Indication: DIFFUSE LARGE B-CELL LYMPHOMA
     Dosage: 300 MG, Q3W
     Route: 048
     Dates: start: 20080702
  6. METFORMIN HCL [Concomitant]
     Indication: PRODUCT USED FOR UNKNOWN INDICATION
     Dosage: UNK
     Dates: start: 20080804
  7. MOTILIUM [Concomitant]
     Indication: PRODUCT USED FOR UNKNOWN INDICATION
     Dosage: UNK
  8. BLINDED BEVACIZUMAB [Suspect]
     Dosage: UNK
     Route: 042
     Dates: start: 20081126
  9. RITUXIMAB [Suspect]
     Indication: DIFFUSE LARGE B-CELL LYMPHOMA
     Dosage: 710 MG, Q3W
     Route: 042
     Dates: start: 20080701
  10. CYCLOPHOSPHAMIDE [Suspect]
     Dosage: UNK
     Route: 042
     Dates: start: 20080630, end: 20081104
  11. DOXORUBICIN HCL [Suspect]
     Dosage: UNK
     Route: 042
     Dates: start: 20080630, end: 20081104
  12. CYCLOPHOSPHAMIDE [Suspect]
     Dosage: UNK
     Route: 042
     Dates: start: 20081126
  13. OMEPRAZOLE [Concomitant]
     Indication: PRODUCT USED FOR UNKNOWN INDICATION
     Dosage: UNK
  14. ACETAMINOPHEN [Concomitant]
     Indication: PRODUCT USED FOR UNKNOWN INDICATION
     Dosage: UNK
     Dates: start: 20080804
  15. PREDNISONE TAB [Suspect]
     Dosage: UNK
     Route: 042
     Dates: start: 20081126
  16. DOXORUBICIN HCL [Suspect]
     Indication: DIFFUSE LARGE B-CELL LYMPHOMA
     Dosage: 94 MG, Q3W
     Route: 042
     Dates: start: 20080701
  17. NEORECORMON [Concomitant]
     Indication: PRODUCT USED FOR UNKNOWN INDICATION
     Dosage: UNK
     Dates: start: 20080925
  18. BLINDED BEVACIZUMAB [Suspect]
     Dosage: UNK
     Route: 042
     Dates: start: 20080630, end: 20081104
  19. VINCRISTINE [Suspect]
     Dosage: UNK
     Route: 042
     Dates: start: 20080630, end: 20081104
  20. VINCRISTINE [Suspect]
     Dosage: UNK
     Route: 042
     Dates: start: 20081126
  21. PLACEBO [Suspect]
     Dosage: UNK
     Route: 042
     Dates: start: 20080630, end: 20081104
  22. PREDNISONE TAB [Suspect]
     Dosage: UNK
     Route: 042
     Dates: start: 20080630, end: 20081104
  23. PLACEBO [Suspect]
     Dosage: UNK
     Route: 042
     Dates: start: 20081126
  24. BLINDED RITUXIMAB [Suspect]
     Dosage: UNK
     Route: 042
     Dates: start: 20081126
  25. PREDNISOLONE [Suspect]
     Indication: DIFFUSE LARGE B-CELL LYMPHOMA
     Dosage: 76 MG, Q3W
     Route: 042
     Dates: start: 20080701

REACTIONS (1)
  - PROTEINURIA [None]
